FAERS Safety Report 11464427 (Version 1)
Quarter: 2015Q3

REPORT INFORMATION
  Report Type: Spontaneous
  Country: US (occurrence: US)
  Receive Date: 20150831
  Receipt Date: 20150831
  Transmission Date: 20151125
  Serious: No
  Sender: FDA-Public Use
  Company Number: US-ELI_LILLY_AND_COMPANY-US201107001953

PATIENT
  Age: 51 Year
  Sex: Female

DRUGS (9)
  1. LYRICA [Concomitant]
     Active Substance: PREGABALIN
  2. SINGULAIR [Concomitant]
     Active Substance: MONTELUKAST SODIUM
  3. CYMBALTA [Suspect]
     Active Substance: DULOXETINE HYDROCHLORIDE
     Indication: FIBROMYALGIA
     Dosage: 60 MG, QD
     Dates: end: 20110701
  4. LEVOTHYROXINE                      /00068001/ [Concomitant]
  5. DRUG USED IN DIABETES [Concomitant]
     Active Substance: UNSPECIFIED INGREDIENT
     Indication: DIABETES MELLITUS
  6. LANTUS [Concomitant]
     Active Substance: INSULIN GLARGINE
     Indication: DIABETES MELLITUS
  7. METFORMIN                          /00082701/ [Concomitant]
  8. INDAPAMIDE. [Concomitant]
     Active Substance: INDAPAMIDE
  9. VYTORIN [Concomitant]
     Active Substance: EZETIMIBE\SIMVASTATIN

REACTIONS (17)
  - Diabetes mellitus [Unknown]
  - Drug dose omission [Recovered/Resolved]
  - Intentional product misuse [Recovered/Resolved]
  - Nightmare [Unknown]
  - Abnormal dreams [Unknown]
  - Collagen-vascular disease [Unknown]
  - Illusion [Unknown]
  - Road traffic accident [Recovered/Resolved]
  - Insomnia [Unknown]
  - Vision blurred [Recovered/Resolved]
  - Feeling jittery [Unknown]
  - Panic reaction [Unknown]
  - Anxiety [Unknown]
  - Drug withdrawal syndrome [Recovered/Resolved]
  - Feeling abnormal [Unknown]
  - Fibromyalgia [Unknown]
  - Agitation [Unknown]

NARRATIVE: CASE EVENT DATE: 20110702
